FAERS Safety Report 9252168 (Version 1)
Quarter: 2013Q1

REPORT INFORMATION
  Report Type: Spontaneous
  Country: US (occurrence: None)
  Receive Date: 20130305
  Receipt Date: 20130305
  Transmission Date: 20140127
  Serious: Yes (Other)
  Sender: FDA-Public Use
  Company Number: 163-21880-12091089

PATIENT
  Age: 69 Year
  Sex: Female
  Weight: 43.09 kg

DRUGS (6)
  1. REVLIMID [Suspect]
     Indication: PLASMA CELL MYELOMA
     Dosage: 1 IN 1 D
     Route: 048
     Dates: start: 20120809
  2. CENTRUM SILVER [Concomitant]
  3. GABAPENTIN (GABAPENTIN) [Concomitant]
  4. ASPIRIN (ACETYLSALICYLIC ACID) [Concomitant]
  5. VITAMIN B12 (CYANOCOBALAMIN) [Concomitant]
  6. MAGNESIUM [Concomitant]

REACTIONS (5)
  - Pyrexia [None]
  - Oropharyngeal pain [None]
  - Diarrhoea [None]
  - Sinusitis [None]
  - Cough [None]
